FAERS Safety Report 8134030-3 (Version None)
Quarter: 2012Q1

REPORT INFORMATION
  Report Type: 
  Country: None (occurrence: None)
  Receive Date: 20120214
  Receipt Date: 20120203
  Transmission Date: 20120608
  Serious: Yes (Hospitalization, Other)
  Sender: FDA-Public Use
  Company Number: DE-BIOGENIDEC-2009BI038800

PATIENT
  Age: 40 Year
  Sex: Female

DRUGS (2)
  1. TYSABRI [Suspect]
     Indication: RELAPSING-REMITTING MULTIPLE SCLEROSIS
     Route: 042
     Dates: start: 20070809, end: 20091007
  2. TOLPERISONE [Concomitant]
     Indication: MUSCLE SPASTICITY

REACTIONS (8)
  - MUSCLE SPASTICITY [None]
  - IMMUNE RECONSTITUTION SYNDROME [None]
  - DYSARTHRIA [None]
  - MUSCLE TIGHTNESS [None]
  - PROGRESSIVE MULTIFOCAL LEUKOENCEPHALOPATHY [None]
  - CONVULSION [None]
  - MOBILITY DECREASED [None]
  - PAIN IN EXTREMITY [None]
